FAERS Safety Report 4687714-3 (Version None)
Quarter: 2005Q2

REPORT INFORMATION
  Report Type: 
  Country: None (occurrence: None)
  Receive Date: 20050608
  Receipt Date: 20050608
  Transmission Date: 20051028
  Serious: Yes (Death, Life-Threatening, Hospitalization)
  Sender: FDA-Public Use
  Company Number: None

PATIENT
  Age: 75 Year
  Sex: Male
  Weight: 95.8 kg

DRUGS (10)
  1. OMNIPAQUE 140 [Suspect]
     Indication: COMPUTERISED TOMOGRAM
     Dosage: 80 ML IV H
     Route: 042
     Dates: start: 20050216
  2. DIATRIZOATE MEGLUMINE [Suspect]
     Dosage: X 1
     Dates: start: 20050216
  3. ASPIRIN [Concomitant]
  4. DIGOXIN [Concomitant]
  5. ZOCOR [Concomitant]
  6. ALLEGRA [Concomitant]
  7. PAXIL [Concomitant]
  8. LASIX [Concomitant]
  9. METAMUCIL [Concomitant]
  10. NPH + REGULAR INSULIN [Concomitant]

REACTIONS (6)
  - ABDOMINAL DISTENSION [None]
  - BLOOD CREATININE INCREASED [None]
  - DYSPNOEA [None]
  - METASTATIC NEOPLASM [None]
  - OEDEMA [None]
  - URINE OUTPUT DECREASED [None]
